FAERS Safety Report 19443977 (Version 4)
Quarter: 2024Q1

REPORT INFORMATION
  Report Type: Spontaneous
  Country: CA (occurrence: CA)
  Receive Date: 20210621
  Receipt Date: 20240222
  Transmission Date: 20240409
  Serious: Yes (Death, Other)
  Sender: FDA-Public Use
  Company Number: CA-HLS-202107746

PATIENT
  Sex: Female

DRUGS (61)
  1. ABILIFY [Suspect]
     Active Substance: ARIPIPRAZOLE
     Indication: Schizophrenia
     Dosage: AMOUNT: 1 DOSAGE FORMS?TABLETS DOSAGE FORM
     Route: 065
  2. ABILIFY [Suspect]
     Active Substance: ARIPIPRAZOLE
     Indication: Schizophrenia
     Route: 065
  3. CLOZAPINE [Suspect]
     Active Substance: CLOZAPINE
     Indication: Schizophrenia
     Dosage: TABLETS DOSAGE FORM
     Route: 065
  4. FLUPENTIXOL [Suspect]
     Active Substance: FLUPENTIXOL
     Indication: Schizophrenia
     Route: 065
  5. FLUPENTIXOL DECANOATE [Suspect]
     Active Substance: FLUPENTIXOL DECANOATE
     Indication: Schizophrenia
     Route: 065
  6. LATUDA [Suspect]
     Active Substance: LURASIDONE HYDROCHLORIDE
     Indication: Schizophrenia
     Dosage: AMOUNT: 1 DOSAGE FORMS?TABLETS DOSAGE FORM
     Route: 065
  7. OLANZAPINE [Suspect]
     Active Substance: OLANZAPINE
     Indication: Schizophrenia
     Route: 065
  8. OLANZAPINE [Suspect]
     Active Substance: OLANZAPINE
     Indication: Schizophrenia
     Dosage: NOT SPECIFIED DOSAGE FORM
     Route: 065
  9. PALIPERIDONE [Suspect]
     Active Substance: PALIPERIDONE
     Indication: Schizophrenia
     Route: 065
  10. QUETIAPINE FUMARATE [Suspect]
     Active Substance: QUETIAPINE FUMARATE
     Indication: Schizophrenia
     Route: 048
  11. QUETIAPINE FUMARATE [Suspect]
     Active Substance: QUETIAPINE FUMARATE
     Indication: Schizophrenia
     Route: 048
  12. RISPERDAL [Concomitant]
     Active Substance: RISPERIDONE
     Indication: Product used for unknown indication
     Dosage: NOT SPECIFIED DOSAGE FORM
     Route: 065
  13. RISPERIDONE [Suspect]
     Active Substance: RISPERIDONE
     Indication: Schizophrenia
     Route: 065
  14. RISPERIDONE [Suspect]
     Active Substance: RISPERIDONE
     Indication: Schizophrenia
     Dosage: NOT SPECIFIED DOSAGE FORM
     Route: 065
  15. SAPHRIS [Suspect]
     Active Substance: ASENAPINE MALEATE
     Indication: Schizophrenia
     Dosage: TABLETS DOSAGE FORM
     Route: 065
  16. ZIPRASIDONE HYDROCHLORIDE [Suspect]
     Active Substance: ZIPRASIDONE HYDROCHLORIDE
     Indication: Schizophrenia
     Route: 065
  17. ZUCLOPENTHIXOL DECANOATE [Suspect]
     Active Substance: ZUCLOPENTHIXOL DECANOATE
     Indication: Schizophrenia
     Route: 065
  18. ASENAPINE MALEATE [Suspect]
     Active Substance: ASENAPINE MALEATE
     Indication: Schizophrenia
     Route: 065
  19. ASENAPINE MALEATE [Suspect]
     Active Substance: ASENAPINE MALEATE
     Indication: Schizophrenia
     Route: 065
  20. ASENAPINE MALEATE [Suspect]
     Active Substance: ASENAPINE MALEATE
     Indication: Schizophrenia
     Dosage: TABLETS DOSAGE FORM
     Route: 065
  21. FLUPENTIXOL DIHYDROCHLORIDE [Suspect]
     Active Substance: FLUPENTIXOL DIHYDROCHLORIDE
     Indication: Schizophrenia
     Route: 065
  22. INVEGA [Suspect]
     Active Substance: PALIPERIDONE
     Indication: Schizophrenia
     Dosage: AMOUNT: 1 DOSAGE FORMS
     Route: 065
  23. INVEGA [Suspect]
     Active Substance: PALIPERIDONE
     Indication: Product used for unknown indication
     Dosage: AMOUNT: 1 DOSAGE FORMS
     Route: 065
  24. INVEGA [Suspect]
     Active Substance: PALIPERIDONE
     Indication: Schizophrenia
     Dosage: AMOUNT: 1 DOSAGE FORMS
     Route: 065
  25. INVEGA [Suspect]
     Active Substance: PALIPERIDONE
     Indication: Product used for unknown indication
     Dosage: AMOUNT: 1 DOSAGE FORMS
     Route: 065
  26. INVEGA [Suspect]
     Active Substance: PALIPERIDONE
     Indication: Schizophrenia
     Dosage: AMOUNT: 1 DOSAGE FORMS?SUSPENSION (EXTENDED-RELEASE) DOSAGE FORM
     Route: 065
  27. INVEGA [Suspect]
     Active Substance: PALIPERIDONE
     Indication: Product used for unknown indication
     Dosage: AMOUNT: 1 DOSAGE FORMS?SUSPENSION (EXTENDED-RELEASE) DOSAGE FORM
     Route: 065
  28. INVEGA [Suspect]
     Active Substance: PALIPERIDONE
     Indication: Schizophrenia
     Dosage: AMOUNT: 1 DOSAGE FORMS?TABLETS DOSAGE FORM
     Route: 048
  29. INVEGA [Suspect]
     Active Substance: PALIPERIDONE
     Indication: Product used for unknown indication
     Dosage: AMOUNT: 1 DOSAGE FORMS?TABLETS DOSAGE FORM
     Route: 048
  30. INVEGA [Suspect]
     Active Substance: PALIPERIDONE
     Indication: Schizophrenia
     Route: 065
  31. INVEGA [Suspect]
     Active Substance: PALIPERIDONE
     Indication: Product used for unknown indication
     Route: 065
  32. INVEGA [Suspect]
     Active Substance: PALIPERIDONE
     Indication: Schizophrenia
     Route: 065
  33. INVEGA [Suspect]
     Active Substance: PALIPERIDONE
     Indication: Product used for unknown indication
     Route: 065
  34. INVEGA [Suspect]
     Active Substance: PALIPERIDONE
     Indication: Schizophrenia
     Route: 065
  35. INVEGA [Suspect]
     Active Substance: PALIPERIDONE
     Indication: Product used for unknown indication
     Route: 065
  36. INVEGA [Suspect]
     Active Substance: PALIPERIDONE
     Indication: Schizophrenia
     Route: 065
  37. INVEGA [Suspect]
     Active Substance: PALIPERIDONE
     Indication: Product used for unknown indication
     Route: 065
  38. INVEGA [Suspect]
     Active Substance: PALIPERIDONE
     Indication: Schizophrenia
     Dosage: NOT SPECIFIED DOSAGE FORM
     Route: 065
  39. INVEGA [Suspect]
     Active Substance: PALIPERIDONE
     Indication: Product used for unknown indication
     Dosage: NOT SPECIFIED DOSAGE FORM
     Route: 065
  40. INVEGA [Suspect]
     Active Substance: PALIPERIDONE
     Indication: Schizophrenia
     Dosage: TABLET (EXTENDED-RELEASE) DOSAGE FORM
     Route: 065
  41. INVEGA [Suspect]
     Active Substance: PALIPERIDONE
     Indication: Product used for unknown indication
     Dosage: TABLET (EXTENDED-RELEASE) DOSAGE FORM
     Route: 065
  42. PLACEBO [Suspect]
     Active Substance: UNSPECIFIED INGREDIENT
     Indication: Schizophrenia
     Dosage: AMOUNT: 1 DOSAGE FORMS
     Route: 065
  43. PLACEBO [Suspect]
     Active Substance: UNSPECIFIED INGREDIENT
     Indication: Product used for unknown indication
     Dosage: AMOUNT: 1 DOSAGE FORMS
     Route: 065
  44. PLACEBO [Suspect]
     Active Substance: UNSPECIFIED INGREDIENT
     Indication: Schizophrenia
     Route: 048
  45. PLACEBO [Suspect]
     Active Substance: UNSPECIFIED INGREDIENT
     Indication: Product used for unknown indication
     Route: 048
  46. PLACEBO [Suspect]
     Active Substance: UNSPECIFIED INGREDIENT
     Indication: Schizophrenia
     Route: 065
  47. PLACEBO [Suspect]
     Active Substance: UNSPECIFIED INGREDIENT
     Indication: Product used for unknown indication
     Route: 065
  48. PLACEBO [Suspect]
     Active Substance: UNSPECIFIED INGREDIENT
     Indication: Schizophrenia
     Route: 048
  49. PLACEBO [Suspect]
     Active Substance: UNSPECIFIED INGREDIENT
     Indication: Product used for unknown indication
     Route: 048
  50. PLACEBO [Suspect]
     Active Substance: UNSPECIFIED INGREDIENT
     Indication: Schizophrenia
     Dosage: NOT SPECIFIED DOSAGE FORM
     Route: 065
  51. PLACEBO [Suspect]
     Active Substance: UNSPECIFIED INGREDIENT
     Indication: Product used for unknown indication
     Dosage: NOT SPECIFIED DOSAGE FORM
     Route: 065
  52. RISPERDAL CONSTA [Suspect]
     Active Substance: RISPERIDONE
     Indication: Schizophrenia
     Dosage: AMOUNT: 1 DOSAGE FORMS
     Route: 065
  53. RISPERDAL CONSTA [Suspect]
     Active Substance: RISPERIDONE
     Indication: Schizophrenia
     Route: 065
  54. RISPERDAL CONSTA [Suspect]
     Active Substance: RISPERIDONE
     Indication: Schizophrenia
     Dosage: KIT DOSAGE FORM
     Route: 065
  55. ZIPRASIDONE MESYLATE [Suspect]
     Active Substance: ZIPRASIDONE MESYLATE
     Indication: Schizophrenia
     Route: 065
  56. ZUCLOPENTHIXOL ACETATE [Suspect]
     Active Substance: ZUCLOPENTHIXOL ACETATE
     Indication: Schizophrenia
     Route: 065
  57. ZUCLOPENTHIXOL ACETATE [Suspect]
     Active Substance: ZUCLOPENTHIXOL ACETATE
     Indication: Schizophrenia
     Dosage: INJECTION DOSAGE FORM
     Route: 065
  58. ZUCLOPENTHIXOL HYDROCHLORIDE [Suspect]
     Active Substance: ZUCLOPENTHIXOL HYDROCHLORIDE
     Indication: Schizophrenia
     Route: 065
  59. ZUCLOPENTHIXOL HYDROCHLORIDE [Suspect]
     Active Substance: ZUCLOPENTHIXOL HYDROCHLORIDE
     Indication: Schizophrenia
     Route: 065
  60. ZUCLOPENTHIXOL HYDROCHLORIDE [Suspect]
     Active Substance: ZUCLOPENTHIXOL HYDROCHLORIDE
     Indication: Schizophrenia
     Dosage: INJECTION DOSAGE FORM
     Route: 065
  61. ZYPREXA [Suspect]
     Active Substance: OLANZAPINE
     Indication: Schizophrenia
     Dosage: TABLETS DOSAGE FORM
     Route: 065

REACTIONS (15)
  - Adverse drug reaction [Unknown]
  - Anosognosia [Unknown]
  - Blood glucose increased [Unknown]
  - Blood prolactin abnormal [Unknown]
  - Completed suicide [Fatal]
  - Condition aggravated [Fatal]
  - Disturbance in social behaviour [Unknown]
  - Drug ineffective [Unknown]
  - Dyskinesia [Unknown]
  - Dystonia [Unknown]
  - Metabolic disorder [Unknown]
  - Personality change [Unknown]
  - Sedation [Unknown]
  - Sexual dysfunction [Unknown]
  - Suicide attempt [Unknown]
